FAERS Safety Report 24592663 (Version 1)
Quarter: 2024Q4

REPORT INFORMATION
  Report Type: Spontaneous
  Country: TW (occurrence: TW)
  Receive Date: 20241108
  Receipt Date: 20241108
  Transmission Date: 20250114
  Serious: Yes (Death, Other)
  Sender: BRISTOL-MYERS SQUIBB COMPANY
  Company Number: TW-BRISTOL-MYERS SQUIBB COMPANY-2024-174766

PATIENT
  Age: 67 Year
  Sex: Female

DRUGS (1)
  1. OPDIVO [Suspect]
     Active Substance: NIVOLUMAB
     Indication: Hepatocellular carcinoma
     Dosage: ROUTE: IVF

REACTIONS (1)
  - Death [Fatal]
